FAERS Safety Report 22207449 (Version 1)
Quarter: 2023Q2

REPORT INFORMATION
  Report Type: Spontaneous
  Country: US (occurrence: US)
  Receive Date: 20230413
  Receipt Date: 20230413
  Transmission Date: 20230722
  Serious: Yes (Hospitalization, Other)
  Sender: FDA-Public Use
  Company Number: US-PFIZER INC-202300150039

PATIENT
  Age: 65 Year
  Sex: Male
  Weight: 77.11 kg

DRUGS (5)
  1. PAXLOVID [Suspect]
     Active Substance: NIRMATRELVIR\RITONAVIR
     Indication: COVID-19 treatment
     Dosage: [PF-07321332 300 MG]/[RITONAVIR 100 MG]; 2X/DAY
     Route: 048
     Dates: start: 20230403, end: 20230407
  2. AZITHROMYCIN [Suspect]
     Active Substance: AZITHROMYCIN
     Dosage: UNK
  3. TESSALON [Suspect]
     Active Substance: BENZONATATE
     Dosage: UNK
  4. DEXAMETHASONE [Suspect]
     Active Substance: DEXAMETHASONE
     Dosage: UNK
  5. BIFIDOBACTERIUM BIFIDUM\LACTOBACILLUS ACIDOPHILUS [Suspect]
     Active Substance: BIFIDOBACTERIUM BIFIDUM\LACTOBACILLUS ACIDOPHILUS
     Dosage: UNK

REACTIONS (2)
  - Pancreatitis [Unknown]
  - Abdominal pain [Unknown]

NARRATIVE: CASE EVENT DATE: 20230407
